FAERS Safety Report 6370109-4 (Version None)
Quarter: 2009Q3

REPORT INFORMATION
  Report Type: 
  Country: None (occurrence: None)
  Receive Date: 20090923
  Receipt Date: 20080107
  Transmission Date: 20100115
  Serious: Yes (Other)
  Sender: FDA-Public Use
  Company Number: US-ASTRAZENECA-2006UW21198

PATIENT
  Age: 606 Month
  Sex: Female
  Weight: 119.3 kg

DRUGS (27)
  1. SEROQUEL [Suspect]
     Indication: SCHIZOPHRENIA
     Dosage: STRENGTH - 200 MG, 300 MG, 400 MG.
     Route: 048
     Dates: start: 20040414
  2. SEROQUEL [Suspect]
     Indication: BIPOLAR DISORDER
     Dosage: STRENGTH - 200 MG, 300 MG, 400 MG.
     Route: 048
     Dates: start: 20040414
  3. SEROQUEL [Suspect]
     Indication: DEPRESSION
     Dosage: STRENGTH - 200 MG, 300 MG, 400 MG.
     Route: 048
     Dates: start: 20040414
  4. SEROQUEL [Suspect]
     Route: 048
     Dates: start: 20070206
  5. SEROQUEL [Suspect]
     Route: 048
     Dates: start: 20070206
  6. SEROQUEL [Suspect]
     Route: 048
     Dates: start: 20070206
  7. CELEXA [Concomitant]
  8. TRAZODONE HCL [Concomitant]
  9. PROZAC [Concomitant]
  10. LITHIUM [Concomitant]
  11. GEODON [Concomitant]
     Dates: start: 20041207
  12. CIMETIDINE [Concomitant]
     Dates: start: 20040324
  13. STRATTERA [Concomitant]
     Dates: start: 20050201
  14. CLONAZEPAM [Concomitant]
     Dosage: STRENGTH 0.5
     Dates: start: 20050201
  15. TOPROL-XL [Concomitant]
     Dates: start: 20040323
  16. PLAVIX [Concomitant]
     Dates: start: 20040130
  17. IBUPROFEN [Concomitant]
     Dates: start: 20051017
  18. ATENOLOL [Concomitant]
     Dates: start: 20051107
  19. CYCLOBENZAPRINE [Concomitant]
     Dates: start: 20070302
  20. RISPERDAL [Concomitant]
     Dates: start: 20040414
  21. HYDROXYZINE PAM [Concomitant]
     Dates: start: 20040906
  22. ULTRACET [Concomitant]
     Dates: start: 20041224
  23. PAXIL CR [Concomitant]
     Dates: start: 20040414
  24. NIZATIDINE [Concomitant]
     Dates: start: 20070223
  25. DYPHYLLINE GG [Concomitant]
     Dates: start: 20061016
  26. ACETAMIN W/COD [Concomitant]
     Dates: start: 20050707
  27. HYDROCODONE BITARTRATE AND ACETAMINOPHEN [Concomitant]
     Dosage: STRENGTH- 7.5/500
     Dates: start: 20040613

REACTIONS (2)
  - DIABETES MELLITUS [None]
  - OVERDOSE [None]
